FAERS Safety Report 17199922 (Version 8)
Quarter: 2020Q2

REPORT INFORMATION
  Report Type: Spontaneous
  Country: IE (occurrence: IE)
  Receive Date: 20191226
  Receipt Date: 20200511
  Transmission Date: 20200713
  Serious: Yes (Other)
  Sender: FDA-Public Use
  Company Number: IE-009507513-1912IRL003368

PATIENT
  Sex: Female

DRUGS (1)
  1. SINEMET PLUS 25MG/100MG TABLETS [Suspect]
     Active Substance: CARBIDOPA\LEVODOPA
     Indication: PARKINSON^S DISEASE
     Dosage: 25MG/100MG - BATCH EXPIRY 03/2021
     Route: 048

REACTIONS (9)
  - Therapeutic product effect decreased [Recovering/Resolving]
  - Dyskinesia [Recovering/Resolving]
  - Hypoaesthesia [Recovered/Resolved]
  - Condition aggravated [Recovering/Resolving]
  - Muscle spasms [Recovered/Resolved]
  - Drug ineffective [Recovering/Resolving]
  - Product complaint [Recovering/Resolving]
  - Dystonia [Recovered/Resolved]
  - Suspected product quality issue [Recovering/Resolving]
